FAERS Safety Report 6732559-3 (Version None)
Quarter: 2010Q2

REPORT INFORMATION
  Report Type: 
  Country: None (occurrence: None)
  Receive Date: 20100519
  Receipt Date: 20100504
  Transmission Date: 20101027
  Serious: Yes (Other)
  Sender: FDA-Public Use
  Company Number: US-SHIRE-SPV1-2010-00880

PATIENT

DRUGS (7)
  1. LIALDA [Suspect]
     Indication: CROHN'S DISEASE
     Dosage: 1.2 G, 1X/DAY:QD
     Route: 048
     Dates: start: 20100401
  2. KLONOPIN [Concomitant]
     Indication: ANXIETY
     Dosage: 2 MG, 3X/DAY:TID
     Route: 048
     Dates: start: 19860101
  3. NIACIN [Concomitant]
     Indication: BLOOD CHOLESTEROL INCREASED
     Dosage: UNK, 1X/DAY:QD
     Route: 048
  4. PAXIL [Concomitant]
     Indication: DEPRESSION
     Dosage: 30 MG, 1X/DAY:QD
     Route: 048
     Dates: start: 19750101
  5. PREMARIN [Concomitant]
     Indication: HORMONE REPLACEMENT THERAPY
     Dosage: .625 MG, 1X/DAY:QD
     Route: 048
  6. BENTYL [Concomitant]
     Indication: GASTRIC DISORDER
     Dosage: 20 MG, 2X/DAY:BID
     Route: 048
  7. ANUSOL                             /00117301/ [Concomitant]
     Indication: ANORECTAL DISORDER

REACTIONS (7)
  - ASTHENIA [None]
  - CONCUSSION [None]
  - HEAD INJURY [None]
  - HYPOTENSION [None]
  - OFF LABEL USE [None]
  - SEDATION [None]
  - SYNCOPE [None]
